FAERS Safety Report 20947372 (Version 2)
Quarter: 2022Q3

REPORT INFORMATION
  Report Type: Spontaneous
  Country: JP (occurrence: JP)
  Receive Date: 20220610
  Receipt Date: 20220704
  Transmission Date: 20221027
  Serious: Yes (Hospitalization, Other)
  Sender: FDA-Public Use
  Company Number: JP-ABBVIE-22K-087-4429425-00

PATIENT
  Age: 72 Year
  Sex: Female

DRUGS (2)
  1. CARBIDOPA\LEVODOPA [Suspect]
     Active Substance: CARBIDOPA\LEVODOPA
     Indication: Parkinson^s disease
     Route: 050
  2. CARBIDOPA\LEVODOPA [Suspect]
     Active Substance: CARBIDOPA\LEVODOPA

REACTIONS (7)
  - Rhabdomyolysis [Recovering/Resolving]
  - Dizziness postural [Unknown]
  - Freezing phenomenon [Unknown]
  - Hallucination [Recovering/Resolving]
  - Delusion [Recovering/Resolving]
  - Orthostatic hypotension [Unknown]
  - Syncope [Unknown]
